FAERS Safety Report 25418026 (Version 5)
Quarter: 2025Q3

REPORT INFORMATION
  Report Type: Spontaneous
  Country: CA (occurrence: CA)
  Receive Date: 20250610
  Receipt Date: 20250813
  Transmission Date: 20251021
  Serious: Yes (Hospitalization, Other)
  Sender: PFIZER
  Company Number: CA-PFIZER INC-202300405838

PATIENT
  Age: 66 Year
  Sex: Female

DRUGS (5)
  1. ABRILADA [Suspect]
     Active Substance: ADALIMUMAB-AFZB
     Indication: Crohn^s disease
     Dosage: 1 DF, WEEKLY, WEEK0:160MG, WEEK2:80MG THEN 40 MG EVERY WEEK
     Route: 058
     Dates: start: 20231221, end: 20250102
  2. ABRILADA [Suspect]
     Active Substance: ADALIMUMAB-AFZB
     Route: 058
     Dates: start: 2025
  3. ABRILADA [Suspect]
     Active Substance: ADALIMUMAB-AFZB
     Dosage: 40 MG, WEEKLY
     Route: 058
     Dates: start: 20250527
  4. ABRILADA [Suspect]
     Active Substance: ADALIMUMAB-AFZB
     Dosage: 40 MG, WEEKLY, (1DF, WEEK0:160MG, WEEK2:80MG THEN 40 MG EVERY WEEK)
     Route: 058
     Dates: start: 20250708
  5. APIXABAN [Concomitant]
     Active Substance: APIXABAN

REACTIONS (5)
  - Renal disorder [Unknown]
  - Urinary tract infection [Recovered/Resolved]
  - Crohn^s disease [Unknown]
  - Pulmonary oedema [Unknown]
  - Off label use [Unknown]

NARRATIVE: CASE EVENT DATE: 20231221
